FAERS Safety Report 12329797 (Version 1)
Quarter: 2016Q2

REPORT INFORMATION
  Report Type: Spontaneous
  Country: CN (occurrence: CN)
  Receive Date: 20160503
  Receipt Date: 20160503
  Transmission Date: 20160815
  Serious: Yes (Other)
  Sender: FDA-Public Use
  Company Number: CN-NOVOPROD-488573

PATIENT
  Sex: Male

DRUGS (2)
  1. NOVOLIN [Suspect]
     Active Substance: INSULIN HUMAN
     Indication: PRODUCT USED FOR UNKNOWN INDICATION
     Dosage: 30 IU, QD(16IU IN THE MORNING, 14IU IN THE EVENING)
     Route: 065
  2. NOVOLIN [Suspect]
     Active Substance: INSULIN HUMAN
     Dosage: UNK
     Route: 065

REACTIONS (7)
  - Diarrhoea [Unknown]
  - Weight decreased [Unknown]
  - Blood glucose increased [Recovered/Resolved]
  - Polyuria [Unknown]
  - Product quality issue [Unknown]
  - Drug ineffective [Unknown]
  - Angina pectoris [Unknown]
